FAERS Safety Report 19875102 (Version 1)
Quarter: 2021Q3

REPORT INFORMATION
  Report Type: Spontaneous
  Country: KR (occurrence: KR)
  Receive Date: 20210923
  Receipt Date: 20210923
  Transmission Date: 20211014
  Serious: Yes (Other)
  Sender: FDA-Public Use
  Company Number: KR-JNJFOC-20210928466

PATIENT
  Age: 43 Year
  Sex: Male

DRUGS (9)
  1. SPRAVATO [Suspect]
     Active Substance: ESKETAMINE
     Indication: PRODUCT USED FOR UNKNOWN INDICATION
  2. DESVENLAFAXINE. [Concomitant]
     Active Substance: DESVENLAFAXINE
  3. ARIPIPRAZOLE. [Concomitant]
     Active Substance: ARIPIPRAZOLE
  4. ARIPIPRAZOLE. [Concomitant]
     Active Substance: ARIPIPRAZOLE
  5. VALPROATE [Concomitant]
     Active Substance: VALPROIC ACID
  6. FLUOXETINE [Concomitant]
     Active Substance: FLUOXETINE HYDROCHLORIDE
  7. SPRAVATO [Suspect]
     Active Substance: ESKETAMINE
  8. LITHIUM. [Concomitant]
     Active Substance: LITHIUM
  9. OLANZAPINE. [Concomitant]
     Active Substance: OLANZAPINE

REACTIONS (6)
  - Sedation [Unknown]
  - Drug ineffective [Unknown]
  - Dizziness [Unknown]
  - Hallucination [Recovered/Resolved]
  - Feeling abnormal [Recovered/Resolved]
  - Somnolence [Unknown]
